FAERS Safety Report 15861750 (Version 4)
Quarter: 2020Q3

REPORT INFORMATION
  Report Type: Spontaneous
  Country: US (occurrence: US)
  Receive Date: 20190124
  Receipt Date: 20200917
  Transmission Date: 20201102
  Serious: No
  Sender: FDA-Public Use
  Company Number: US-PFIZER INC-2019029940

PATIENT
  Age: 46 Year
  Sex: Female
  Weight: 82.7 kg

DRUGS (2)
  1. GABAPENTIN. [Suspect]
     Active Substance: GABAPENTIN
     Dosage: UNK
  2. LYRICA [Concomitant]
     Active Substance: PREGABALIN
     Indication: FIBROMYALGIA
     Dosage: 1 DF, 2X/DAY (1 CAPSULE 2 TIMES A DAY)
     Route: 048

REACTIONS (1)
  - Treatment failure [Unknown]
